FAERS Safety Report 8195956-8 (Version None)
Quarter: 2012Q1

REPORT INFORMATION
  Report Type: 
  Country: None (occurrence: None)
  Receive Date: 20120309
  Receipt Date: 20120228
  Transmission Date: 20120608
  Serious: Yes (Hospitalization, Other)
  Sender: FDA-Public Use
  Company Number: US-BIOGENIDEC-2011BI023736

PATIENT
  Age: 59 Year
  Sex: Male

DRUGS (4)
  1. TYSABRI [Suspect]
     Indication: MULTIPLE SCLEROSIS
     Route: 042
     Dates: start: 20061107, end: 20100420
  2. TYSABRI [Suspect]
     Route: 042
     Dates: start: 20120201
  3. AVONEX [Concomitant]
     Indication: MULTIPLE SCLEROSIS
     Route: 030
  4. TYSABRI [Suspect]
     Route: 042
     Dates: start: 20110301, end: 20110329

REACTIONS (2)
  - OSTEOMYELITIS [None]
  - INFECTED SKIN ULCER [None]
